FAERS Safety Report 4743608-6 (Version None)
Quarter: 2005Q3

REPORT INFORMATION
  Report Type: 
  Country: None (occurrence: None)
  Receive Date: 20050812
  Receipt Date: 20050720
  Transmission Date: 20060218
  Serious: Yes (Hospitalization, Other)
  Sender: FDA-Public Use
  Company Number: 200515926US

PATIENT
  Sex: Male
  Weight: 150 kg

DRUGS (2)
  1. LOVENOX [Suspect]
     Indication: THROMBOSIS
     Dosage: DOSE: UNKNOWN
     Route: 051
     Dates: start: 20020101
  2. VIOXX [Concomitant]
     Dosage: DOSE: UNKNOWN

REACTIONS (11)
  - CEREBROVASCULAR ACCIDENT [None]
  - DEEP VEIN THROMBOSIS [None]
  - INCORRECT DOSE ADMINISTERED [None]
  - INJECTION SITE IRRITATION [None]
  - NODULE [None]
  - PAIN [None]
  - PARALYSIS [None]
  - PRE-EXISTING CONDITION IMPROVED [None]
  - PULMONARY EMBOLISM [None]
  - RENAL FAILURE [None]
  - WEIGHT DECREASED [None]
